FAERS Safety Report 8101780-4 (Version None)
Quarter: 2012Q1

REPORT INFORMATION
  Report Type: 
  Country: None (occurrence: None)
  Receive Date: 20120131
  Receipt Date: 20120123
  Transmission Date: 20120608
  Serious: Yes (Other)
  Sender: FDA-Public Use
  Company Number: PHHY2011JP23140

PATIENT
  Age: 3 Year
  Sex: Male

DRUGS (5)
  1. PREDNISOLONE [Concomitant]
     Indication: HISTIOCYTOSIS HAEMATOPHAGIC
     Dosage: 2 MG/KG
     Route: 048
  2. IMMUNE GLOBULIN NOS [Concomitant]
     Indication: KAWASAKI'S DISEASE
     Dosage: 2 G/KG
  3. SANDIMMUNE [Suspect]
     Indication: HISTIOCYTOSIS HAEMATOPHAGIC
     Dosage: 3 MG/KG
     Route: 048
  4. AZITHROMYCIN [Concomitant]
     Indication: HISTIOCYTOSIS HAEMATOPHAGIC
  5. CEFTRIAXONE [Concomitant]
     Indication: HISTIOCYTOSIS HAEMATOPHAGIC

REACTIONS (10)
  - PARALYSIS [None]
  - DEVELOPMENTAL DELAY [None]
  - POLIOMYELITIS [None]
  - SLOW RESPONSE TO STIMULI [None]
  - HYPOKINESIA [None]
  - GAIT DISTURBANCE [None]
  - ENCEPHALITIS [None]
  - HYPOREFLEXIA [None]
  - HERPES VIRUS INFECTION [None]
  - PARALYSIS FLACCID [None]
